FAERS Safety Report 7709862-3 (Version None)
Quarter: 2011Q3

REPORT INFORMATION
  Report Type: 
  Country: None (occurrence: None)
  Receive Date: 20110825
  Receipt Date: 20110822
  Transmission Date: 20111222
  Serious: Yes (Hospitalization)
  Sender: FDA-Public Use
  Company Number: GB-ABBOTT-11P-167-0848572-00

PATIENT
  Sex: Male

DRUGS (1)
  1. CLARITHROMYCIN [Suspect]
     Indication: PRODUCT USED FOR UNKNOWN INDICATION
     Dosage: 125MG/5ML SUSPENSION
     Route: 048
     Dates: start: 20110721, end: 20110727

REACTIONS (5)
  - MALAISE [None]
  - ABDOMINAL DISCOMFORT [None]
  - PHARYNGEAL ERYTHEMA [None]
  - PYREXIA [None]
  - URINARY INCONTINENCE [None]
